FAERS Safety Report 9697865 (Version 2)
Quarter: 2013Q4

REPORT INFORMATION
  Report Type: Spontaneous
  Country: US (occurrence: US)
  Receive Date: 20131120
  Receipt Date: 20131126
  Transmission Date: 20140711
  Serious: Yes (Other)
  Sender: FDA-Public Use
  Company Number: US-B.I. PHARMACEUTICALS,INC./RIDGEFIELD-2013-BI-37573BP

PATIENT
  Sex: Female
  Weight: 65.77 kg

DRUGS (1)
  1. AGGRENOX [Suspect]
     Dosage: STRENGTH: 25 MG / 200 MG;DALIY DOSE: 50 MB/400
     Route: 048

REACTIONS (1)
  - Dementia [Not Recovered/Not Resolved]
